FAERS Safety Report 6301239-0 (Version None)
Quarter: 2009Q3

REPORT INFORMATION
  Report Type: 
  Country: None (occurrence: None)
  Receive Date: 20090806
  Receipt Date: 20090806
  Transmission Date: 20100115
  Serious: Yes (Disabling, Other)
  Sender: FDA-Public Use
  Company Number: None

PATIENT
  Age: 65 Year
  Sex: Female
  Weight: 80.7403 kg

DRUGS (1)
  1. LISINOPRIL [Suspect]
     Indication: HYPERTENSION
     Dosage: 2X A DAY 2X DAY 20 MG
     Dates: start: 20080901, end: 20090701

REACTIONS (4)
  - ARTHRALGIA [None]
  - DIZZINESS [None]
  - MYALGIA [None]
  - URINARY TRACT DISORDER [None]
